FAERS Safety Report 10071250 (Version 1)
Quarter: 2014Q2

REPORT INFORMATION
  Report Type: Spontaneous
  Country: AU (occurrence: AU)
  Receive Date: 20140410
  Receipt Date: 20140410
  Transmission Date: 20141212
  Serious: Yes (Other)
  Sender: FDA-Public Use
  Company Number: PHHY2014AU042211

PATIENT
  Age: 55 Year
  Sex: Male

DRUGS (1)
  1. ACETYLSALICYLIC ACID [Suspect]

REACTIONS (4)
  - Thrombosis in device [Unknown]
  - Acute myocardial infarction [Unknown]
  - Chest pain [Unknown]
  - Device occlusion [Unknown]
